FAERS Safety Report 7647807-5 (Version None)
Quarter: 2011Q3

REPORT INFORMATION
  Report Type: 
  Country: None (occurrence: None)
  Receive Date: 20110801
  Receipt Date: 20110726
  Transmission Date: 20111222
  Serious: Yes (Hospitalization)
  Sender: FDA-Public Use
  Company Number: CH-MERCK-1107USA03487

PATIENT
  Age: 78 Year
  Sex: Female

DRUGS (5)
  1. EVISTA [Suspect]
     Route: 065
  2. DANCOR [Suspect]
     Route: 065
  3. VYTORIN [Suspect]
     Route: 048
  4. PERINDOPRIL ERBUMINE [Suspect]
     Route: 065
  5. SERETIDE [Suspect]
     Route: 065

REACTIONS (1)
  - TELANGIECTASIA [None]
